FAERS Safety Report 14103282 (Version 1)
Quarter: 2017Q4

REPORT INFORMATION
  Report Type: Spontaneous
  Country: CN (occurrence: CN)
  Receive Date: 20171018
  Receipt Date: 20171018
  Transmission Date: 20180321
  Serious: Yes (Hospitalization, Other)
  Sender: FDA-Public Use
  Company Number: CN-PFIZER INC-2017447178

PATIENT
  Age: 78 Year
  Sex: Male

DRUGS (1)
  1. MEPEM [Suspect]
     Active Substance: MEROPENEM
     Indication: LUNG INFECTION
     Dosage: 1 G, 3X/DAY
     Route: 041
     Dates: start: 20170715, end: 20170719

REACTIONS (3)
  - Tremor [Recovered/Resolved]
  - Delirium tremens [Recovered/Resolved]
  - Halo vision [Recovered/Resolved]

NARRATIVE: CASE EVENT DATE: 20170718
